FAERS Safety Report 9117175 (Version 2)
Quarter: 2013Q1

REPORT INFORMATION
  Report Type: Report from Study
  Country: US (occurrence: US)
  Receive Date: 20130225
  Receipt Date: 20130320
  Transmission Date: 20140127
  Serious: Yes (Death, Hospitalization, Other)
  Sender: FDA-Public Use
  Company Number: US-TEVA-388104USA

PATIENT
  Sex: Male

DRUGS (6)
  1. CLOZAPINE [Suspect]
     Indication: SCHIZOPHRENIA
     Route: 048
     Dates: end: 20130216
  2. HALOPERIDOL DECANOATE [Concomitant]
     Dosage: 3.5714 MILLIGRAM DAILY;
     Route: 030
  3. ZYPREXA [Concomitant]
     Dosage: 15 MG AM AND 10 MG QHS
  4. PANTOPRAZOLE [Concomitant]
     Dosage: 40 MILLIGRAM DAILY;
  5. CARAFATE [Concomitant]
     Dosage: 4 GRAM DAILY;
  6. COLACE [Concomitant]
     Dosage: 200 MILLIGRAM DAILY;

REACTIONS (1)
  - Death [Fatal]
